FAERS Safety Report 6815866-5 (Version None)
Quarter: 2010Q3

REPORT INFORMATION
  Report Type: 
  Country: None (occurrence: None)
  Receive Date: 20100705
  Receipt Date: 20100624
  Transmission Date: 20110219
  Serious: No
  Sender: FDA-Public Use
  Company Number: US-BIOGENIDEC-2010BI007399

PATIENT
  Age: 46 Year
  Sex: Female
  Weight: 72 kg

DRUGS (3)
  1. TYSABRI [Suspect]
     Indication: MULTIPLE SCLEROSIS
     Route: 042
     Dates: start: 20081017, end: 20100201
  2. TYSABRI [Suspect]
     Route: 042
     Dates: start: 20100401
  3. TOPAMAX [Concomitant]
     Indication: MIGRAINE

REACTIONS (7)
  - ABDOMINAL PAIN UPPER [None]
  - ASTHENIA [None]
  - BENIGN NEOPLASM [None]
  - MUSCULAR WEAKNESS [None]
  - NEPHROLITHIASIS [None]
  - SPLEEN DISORDER [None]
  - TREMOR [None]
